FAERS Safety Report 8046671-2 (Version None)
Quarter: 2012Q1

REPORT INFORMATION
  Report Type: 
  Country: None (occurrence: None)
  Receive Date: 20120115
  Receipt Date: 20111221
  Transmission Date: 20120608
  Serious: No
  Sender: FDA-Public Use
  Company Number: US-ROXANE LABORATORIES, INC.-2011-RO-01848RO

PATIENT
  Sex: Male

DRUGS (3)
  1. FLUTICASONE PROPIONATE [Suspect]
     Indication: MULTIPLE ALLERGIES
     Route: 045
     Dates: start: 20111201, end: 20111201
  2. M.V.I. [Concomitant]
  3. FISH OIL [Concomitant]

REACTIONS (2)
  - EPISTAXIS [None]
  - NASAL DISCOMFORT [None]
